FAERS Safety Report 9278353 (Version 10)
Quarter: 2014Q3

REPORT INFORMATION
  Report Type: Report from Study
  Country: FR (occurrence: FR)
  Receive Date: 20130508
  Receipt Date: 20140815
  Transmission Date: 20150326
  Serious: Yes (Life-Threatening, Hospitalization)
  Sender: FDA-Public Use
  Company Number: FR-ROCHE-1208854

PATIENT
  Age: 69 Year
  Sex: Male
  Weight: 82 kg

DRUGS (17)
  1. CRESTOR [Concomitant]
     Active Substance: ROSUVASTATIN CALCIUM
     Route: 065
     Dates: start: 20130225, end: 20130226
  2. TENORMIN [Concomitant]
     Active Substance: ATENOLOL
     Route: 065
     Dates: start: 2009
  3. KARDEGIC [Concomitant]
     Active Substance: ASPIRIN LYSINE
     Route: 065
     Dates: start: 2009
  4. XATRAL [Concomitant]
     Active Substance: ALFUZOSIN
     Route: 065
     Dates: start: 2009
  5. XYZALL [Concomitant]
     Active Substance: LEVOCETIRIZINE DIHYDROCHLORIDE
     Route: 065
     Dates: start: 20130116
  6. BEVACIZUMAB [Suspect]
     Active Substance: BEVACIZUMAB
     Indication: LUNG NEOPLASM MALIGNANT
     Dosage: LAST DOSE PRIOR TO EVENT:06/FEB/2013; 05/MAR/2013, 03/APR/2013
     Route: 042
     Dates: start: 20121226, end: 20130326
  7. NIVESTIM [Concomitant]
     Active Substance: FILGRASTIM
     Dosage: 30 UI/0.5 ML
     Route: 065
     Dates: start: 20130406
  8. BEVACIZUMAB [Suspect]
     Active Substance: BEVACIZUMAB
     Route: 042
     Dates: start: 20130618
  9. CARBOPLATIN. [Suspect]
     Active Substance: CARBOPLATIN
     Indication: LUNG NEOPLASM MALIGNANT
     Route: 065
     Dates: start: 20121226, end: 20130206
  10. PEMETREXED [Suspect]
     Active Substance: PEMETREXED
     Dosage: LAST DOSE PRIOR TO SAE: 03/APR/2013, PERMANENTLY DISCONTINUED.
     Route: 042
     Dates: start: 20130403, end: 20130403
  11. GRANOCYTE [Concomitant]
     Active Substance: LENOGRASTIM
     Dosage: 34 MUI/ML DAILY DOSE
     Route: 065
     Dates: start: 20121230
  12. PEMETREXED [Suspect]
     Active Substance: PEMETREXED
     Indication: LUNG NEOPLASM MALIGNANT
     Dosage: LAST DOSE PRIOR TO SAE: 05/MAR/2013, VIAL
     Route: 042
     Dates: start: 20121226, end: 20130326
  13. CRESTOR [Concomitant]
     Active Substance: ROSUVASTATIN CALCIUM
     Route: 065
     Dates: start: 2009
  14. BEVACIZUMAB [Suspect]
     Active Substance: BEVACIZUMAB
     Route: 042
     Dates: start: 20130403, end: 20130403
  15. XATRAL [Concomitant]
     Active Substance: ALFUZOSIN
     Route: 065
     Dates: start: 20130225, end: 20130226
  16. XYZALL [Concomitant]
     Active Substance: LEVOCETIRIZINE DIHYDROCHLORIDE
     Route: 065
     Dates: start: 20130225, end: 20130226
  17. VITAMIN B12 [Concomitant]
     Active Substance: CYANOCOBALAMIN
     Route: 065
     Dates: start: 20111115

REACTIONS (2)
  - Bone marrow failure [Recovered/Resolved]
  - Thrombocytopenia [Recovered/Resolved]

NARRATIVE: CASE EVENT DATE: 20130218
